FAERS Safety Report 9943395 (Version 3)
Quarter: 2014Q2

REPORT INFORMATION
  Report Type: Report from Study
  Country: US (occurrence: US)
  Receive Date: 20140303
  Receipt Date: 20140422
  Transmission Date: 20141212
  Serious: Yes (Hospitalization, Other)
  Sender: FDA-Public Use
  Company Number: PHEH2014US003884

PATIENT
  Age: 67 Year
  Sex: Female

DRUGS (7)
  1. GLEEVEC [Suspect]
     Indication: CHRONIC MYELOID LEUKAEMIA
     Dosage: 400 MG, DAILY
     Route: 048
     Dates: start: 20090904
  2. ATENOLOL [Concomitant]
     Dosage: UNK UKN, UNK
     Dates: start: 20140218
  3. AMIODARONE [Concomitant]
     Dosage: UNK UKN, UNK
  4. PRADAXA [Concomitant]
     Dosage: UNK UKN, UNK
  5. CORDARONE [Concomitant]
     Dosage: UNK UKN, UNK
  6. DILTIAZEM [Concomitant]
     Dosage: UNK UKN, CONTINUOUS
  7. AMLODIPINE [Concomitant]
     Dosage: UNK UKN, UNK

REACTIONS (9)
  - Heart rate abnormal [Recovering/Resolving]
  - Blood pressure fluctuation [Recovering/Resolving]
  - Hypertension [Recovering/Resolving]
  - Heart rate increased [Recovering/Resolving]
  - Diabetes mellitus [Not Recovered/Not Resolved]
  - Cardiac disorder [Unknown]
  - Cardiac failure congestive [Unknown]
  - Atrial fibrillation [Unknown]
  - Pain in extremity [Not Recovered/Not Resolved]
